FAERS Safety Report 10813980 (Version 1)
Quarter: 2015Q1

REPORT INFORMATION
  Report Type: Report from Study
  Country: US (occurrence: US)
  Receive Date: 20150218
  Receipt Date: 20150218
  Transmission Date: 20150721
  Serious: No
  Sender: FDA-Public Use
  Company Number: US-ABBVIE-14K-163-1281046-00

PATIENT
  Age: 53 Year
  Sex: Female

DRUGS (6)
  1. HUMIRA [Suspect]
     Active Substance: ADALIMUMAB
     Indication: CROHN^S DISEASE
     Dates: start: 20130804, end: 201408
  2. VITAMIN B12 [Concomitant]
     Active Substance: CYANOCOBALAMIN
     Indication: VITAMIN B12 DECREASED
  3. IMURAN [Concomitant]
     Active Substance: AZATHIOPRINE
     Indication: CROHN^S DISEASE
  4. HYDROCHLOROTHIAZIDE. [Concomitant]
     Active Substance: HYDROCHLOROTHIAZIDE
     Indication: HYPERTENSION
  5. NUTRAPLENISH GI [Concomitant]
     Indication: SUPPLEMENTATION THERAPY
  6. IRON [Concomitant]
     Active Substance: IRON
     Indication: ANAEMIA

REACTIONS (13)
  - Drug dose omission [Unknown]
  - Fall [Unknown]
  - Limb injury [Unknown]
  - Musculoskeletal pain [Recovered/Resolved]
  - Injection site pain [Recovered/Resolved]
  - Crohn^s disease [Recovered/Resolved]
  - Spinal column injury [Unknown]
  - Headache [Recovered/Resolved]
  - Musculoskeletal pain [Recovering/Resolving]
  - Headache [Not Recovered/Not Resolved]
  - Injection site bruising [Not Recovered/Not Resolved]
  - Head injury [Unknown]
  - Asthenia [Unknown]

NARRATIVE: CASE EVENT DATE: 201311
